FAERS Safety Report 8019341-4 (Version None)
Quarter: 2012Q1

REPORT INFORMATION
  Report Type: 
  Country: None (occurrence: None)
  Receive Date: 20120103
  Receipt Date: 20111223
  Transmission Date: 20120608
  Serious: Yes (Hospitalization, Other)
  Sender: FDA-Public Use
  Company Number: US-ACTELION-A-US2007-14345

PATIENT

DRUGS (5)
  1. ANTIHYPERTENSIVES [Concomitant]
  2. BENADRYL [Concomitant]
  3. TRACLEER [Suspect]
     Indication: PULMONARY ARTERIAL HYPERTENSION
     Dosage: UNK MG, UNK
     Route: 048
     Dates: start: 20041201
  4. IRON [Concomitant]
  5. COUMADIN [Concomitant]

REACTIONS (8)
  - SMALL INTESTINAL OBSTRUCTION [None]
  - SMALL INTESTINE CARCINOMA [None]
  - BLOOD IRON DECREASED [None]
  - FATIGUE [None]
  - DRUG DOSE OMISSION [None]
  - DYSPNOEA [None]
  - ANAEMIA [None]
  - SMALL INTESTINAL RESECTION [None]
